FAERS Safety Report 12632495 (Version 2)
Quarter: 2016Q3

REPORT INFORMATION
  Report Type: Spontaneous
  Country: US (occurrence: US)
  Receive Date: 20160808
  Receipt Date: 20160808
  Transmission Date: 20161109
  Serious: No
  Sender: FDA-Public Use
  Company Number: US-BEH-2016062428

PATIENT
  Sex: Female
  Weight: 96 kg

DRUGS (17)
  1. XALATAN [Concomitant]
     Active Substance: LATANOPROST
  2. COZAAR [Concomitant]
     Active Substance: LOSARTAN POTASSIUM
  3. ACULAR [Concomitant]
     Active Substance: KETOROLAC TROMETHAMINE
  4. EPIPEN [Concomitant]
     Active Substance: EPINEPHRINE
  5. VITAMIN B12 [Concomitant]
     Active Substance: CYANOCOBALAMIN
  6. VITAMIN D [Concomitant]
     Active Substance: CHOLECALCIFEROL
  7. MACRODANTIN [Concomitant]
     Active Substance: NITROFURANTOIN
  8. VENTOLIN [Concomitant]
     Active Substance: ALBUTEROL SULFATE
  9. DENAVIR [Concomitant]
     Active Substance: PENCICLOVIR
  10. CLEOCIN [Concomitant]
     Active Substance: CLINDAMYCIN PHOSPHATE
  11. NITROGLYCERIN. [Concomitant]
     Active Substance: NITROGLYCERIN
  12. HIZENTRA [Suspect]
     Active Substance: HUMAN IMMUNOGLOBULIN G
     Indication: CONGENITAL HYPOGAMMAGLOBULINAEMIA
     Route: 058
  13. BIAXIN [Concomitant]
     Active Substance: CLARITHROMYCIN
  14. CORTISONE [Concomitant]
     Active Substance: CORTISONE\HYDROCORTISONE
  15. HYZAAR [Concomitant]
     Active Substance: HYDROCHLOROTHIAZIDE\LOSARTAN POTASSIUM
  16. ACETAMINOPHEN. [Concomitant]
     Active Substance: ACETAMINOPHEN
  17. LANTUS [Concomitant]
     Active Substance: INSULIN GLARGINE

REACTIONS (3)
  - Infusion site pruritus [Unknown]
  - Infusion site swelling [Unknown]
  - Infusion site pain [Unknown]
